FAERS Safety Report 12708764 (Version 1)
Quarter: 2016Q3

REPORT INFORMATION
  Report Type: Report from Study
  Country: US (occurrence: US)
  Receive Date: 20160901
  Receipt Date: 20160901
  Transmission Date: 20161109
  Serious: Yes (Hospitalization)
  Sender: FDA-Public Use
  Company Number: US-ASTRAZENECA-2015SE35085

PATIENT
  Age: 22186 Day
  Sex: Male
  Weight: 95.3 kg

DRUGS (4)
  1. SYMBICORT [Suspect]
     Active Substance: BUDESONIDE\FORMOTEROL FUMARATE DIHYDRATE
     Indication: CHRONIC OBSTRUCTIVE PULMONARY DISEASE
     Dosage: 160 MCG / 4.5 MCG,  2 PUFFS, FREQUENCY: TWO TIMES A DAY
     Route: 055
     Dates: start: 20150324
  2. SYMBICORT [Suspect]
     Active Substance: BUDESONIDE\FORMOTEROL FUMARATE DIHYDRATE
     Indication: CHRONIC OBSTRUCTIVE PULMONARY DISEASE
     Dosage: DOSE:160 MCG / 4.5 MCG,  2 PUFFS, FREQUENCY: TWO TIMES A DAY
     Route: 055
     Dates: start: 20141226
  3. SYMBICORT [Suspect]
     Active Substance: BUDESONIDE\FORMOTEROL FUMARATE DIHYDRATE
     Indication: PULMONARY HYPERTENSION
     Dosage: DOSE:160 MCG / 4.5 MCG,  2 PUFFS, FREQUENCY: TWO TIMES A DAY
     Route: 055
     Dates: start: 20141226
  4. SYMBICORT [Suspect]
     Active Substance: BUDESONIDE\FORMOTEROL FUMARATE DIHYDRATE
     Indication: PULMONARY HYPERTENSION
     Dosage: 160 MCG / 4.5 MCG,  2 PUFFS, FREQUENCY: TWO TIMES A DAY
     Route: 055
     Dates: start: 20150324

REACTIONS (6)
  - Product quality issue [Unknown]
  - Dyspnoea [Unknown]
  - Panic attack [Unknown]
  - Intentional product misuse [Unknown]
  - Product use issue [Unknown]
  - Off label use [Unknown]

NARRATIVE: CASE EVENT DATE: 20141226
